FAERS Safety Report 15862130 (Version 1)
Quarter: 2018Q4

REPORT INFORMATION
  Report Type: Spontaneous
  Country: US (occurrence: US)
  Receive Date: 20181231
  Receipt Date: 20181231
  Transmission Date: 20190205
  Serious: Yes (Death, Life-Threatening)
  Sender: FDA-Public Use
  Company Number: None

PATIENT
  Age: 55 Year
  Sex: Male
  Weight: 101.7 kg

DRUGS (1)
  1. MIRCERA [Suspect]
     Active Substance: METHOXY POLYETHYLENE GLYCOL-EPOETIN BETA
     Indication: ANAEMIA
     Dosage: ?          OTHER FREQUENCY:EVERY 2 WEEKS;?
     Route: 040
     Dates: start: 20180927, end: 20181108

REACTIONS (2)
  - Hypotension [None]
  - Unresponsive to stimuli [None]

NARRATIVE: CASE EVENT DATE: 20181108
